FAERS Safety Report 10336142 (Version 2)
Quarter: 2014Q3

REPORT INFORMATION
  Report Type: Spontaneous
  Country: US (occurrence: US)
  Receive Date: 20140723
  Receipt Date: 20140723
  Transmission Date: 20150326
  Serious: Yes (Hospitalization)
  Sender: FDA-Public Use
  Company Number: US-BRISTOL-MYERS SQUIBB COMPANY-19829894

PATIENT
  Age: 61 Year
  Sex: Male

DRUGS (5)
  1. TREPROSTINIL [Concomitant]
     Active Substance: TREPROSTINIL
  2. TADALAFIL [Concomitant]
     Active Substance: TADALAFIL
  3. LETAIRIS [Suspect]
     Active Substance: AMBRISENTAN
     Indication: PULMONARY HYPERTENSION
     Route: 048
     Dates: start: 20130405
  4. PROCHLORPERAZINE. [Suspect]
     Active Substance: PROCHLORPERAZINE
     Indication: PULMONARY HYPERTENSION
  5. COUMADIN [Suspect]
     Active Substance: WARFARIN SODIUM

REACTIONS (2)
  - Haemoptysis [Not Recovered/Not Resolved]
  - International normalised ratio increased [Unknown]
